FAERS Safety Report 4449431-4 (Version None)
Quarter: 2004Q3

REPORT INFORMATION
  Report Type: 
  Country: None (occurrence: None)
  Receive Date: 20040913
  Receipt Date: 20040826
  Transmission Date: 20050211
  Serious: Yes (Death)
  Sender: FDA-Public Use
  Company Number: S04-IRL-00770-01

PATIENT
  Age: 60 Year
  Sex: Male

DRUGS (14)
  1. CITALOPRAM HYDROBROMIDE [Suspect]
     Indication: DEPRESSION
     Dosage: 30 MG QD PO
     Route: 048
     Dates: start: 20000710, end: 20030221
  2. CITALOPRAM HYDROBROMIDE [Suspect]
     Indication: DEPRESSION
     Dosage: 20 MG QD PO
     Route: 048
     Dates: start: 20000515, end: 20000709
  3. FLUPHENAZINE DECANOATE [Concomitant]
  4. NEXIUM [Concomitant]
  5. CHLORPROMAZINE [Concomitant]
  6. PERIACTIN [Concomitant]
  7. ENSURE PLUS [Concomitant]
  8. COGENTIN [Concomitant]
  9. FYBOGEL (ISPAGHULA) [Concomitant]
  10. BENZTROPINE MESYLATE [Concomitant]
  11. DIAZEPAM [Concomitant]
  12. NULYTELY [Concomitant]
  13. LACTULOSE [Concomitant]
  14. FLETCHER'S PHOSPHATE ENEMA [Concomitant]

REACTIONS (15)
  - ARRHYTHMIA [None]
  - ASTHENIA [None]
  - COMMUNICATION DISORDER [None]
  - CONGENITAL ANOMALY [None]
  - CONSTIPATION [None]
  - DRUG INTERACTION [None]
  - DRUG TOXICITY [None]
  - FALL [None]
  - HEAD INJURY [None]
  - LIVER DISORDER [None]
  - MARKEDLY REDUCED DIETARY INTAKE [None]
  - PULMONARY OEDEMA [None]
  - RENAL DISORDER [None]
  - SUDDEN DEATH [None]
  - WOUND [None]
